FAERS Safety Report 8268413-8 (Version None)
Quarter: 2012Q2

REPORT INFORMATION
  Report Type: 
  Country: None (occurrence: None)
  Receive Date: 20120409
  Receipt Date: 20120404
  Transmission Date: 20120825
  Serious: Yes (Life-Threatening)
  Sender: FDA-Public Use
  Company Number: JP-ASTRAZENECA-2012SE07535

PATIENT
  Age: 26303 Day
  Sex: Female
  Weight: 64 kg

DRUGS (11)
  1. ROPIVACAINE HYDROCHLORIDE [Suspect]
     Indication: EPIDURAL ANAESTHESIA
     Dosage: ( 2 MG/ML) 124 MG/DAILY TOTAL AMOUNT OF ADMINISTRATION: 62 ML
     Route: 008
  2. ROCURONIUM BROMIDE [Suspect]
     Indication: GENERAL ANAESTHESIA
     Route: 042
     Dates: start: 20111206, end: 20111206
  3. ULTIVA [Concomitant]
     Indication: GENERAL ANAESTHESIA
     Route: 042
     Dates: start: 20111206, end: 20111206
  4. FENTANYL CITRATE [Suspect]
     Indication: GENERAL ANAESTHESIA
     Route: 042
     Dates: start: 20111206, end: 20111206
  5. AMLODIPINE [Suspect]
     Indication: HYPERTENSION
     Route: 048
  6. SUGAMMADEX SODIUM [Suspect]
     Route: 065
  7. XYLOCAINE [Concomitant]
     Indication: EPIDURAL ANAESTHESIA
     Route: 008
     Dates: start: 20111206, end: 20111206
  8. SEVOFLURANE [Concomitant]
     Indication: GENERAL ANAESTHESIA
     Route: 055
     Dates: start: 20111206, end: 20111206
  9. EPINEPHRIN AND PREPARATIONS [Concomitant]
     Indication: EPIDURAL ANAESTHESIA
     Route: 065
  10. CANDESARTAN CILEXETIL [Suspect]
     Indication: HYPERTENSION
     Route: 048
  11. SUGAMMADEX SODIUM [Suspect]
     Indication: GENERAL ANAESTHESIA
     Route: 042
     Dates: start: 20111206, end: 20111206

REACTIONS (1)
  - ATRIOVENTRICULAR BLOCK SECOND DEGREE [None]
